FAERS Safety Report 10500793 (Version 1)
Quarter: 2014Q4

REPORT INFORMATION
  Report Type: Spontaneous
  Country: PL (occurrence: PL)
  Receive Date: 20141007
  Receipt Date: 20141007
  Transmission Date: 20150528
  Serious: Yes (Hospitalization)
  Sender: FDA-Public Use
  Company Number: PL-ROCHE-1469182

PATIENT
  Sex: Male
  Weight: 67 kg

DRUGS (1)
  1. CAPECITABINE. [Suspect]
     Active Substance: CAPECITABINE
     Indication: OESOPHAGEAL CARCINOMA
     Route: 048
     Dates: start: 20140514, end: 20140515

REACTIONS (4)
  - Altered state of consciousness [Recovering/Resolving]
  - Delusion [Recovering/Resolving]
  - Communication disorder [Recovering/Resolving]
  - Retrograde amnesia [Recovering/Resolving]
